FAERS Safety Report 4778441-2 (Version None)
Quarter: 2005Q3

REPORT INFORMATION
  Report Type: 
  Country: None (occurrence: None)
  Receive Date: 20050923
  Receipt Date: 20050923
  Transmission Date: 20060218
  Serious: Yes (Congenital Anomaly)
  Sender: FDA-Public Use
  Company Number: None

PATIENT
  Sex: Male
  Weight: 3.5154 kg

DRUGS (2)
  1. PAXIL [Suspect]
     Indication: DEPRESSION
     Dosage: 20MG   DAILY   PO
     Route: 048
     Dates: start: 20040101, end: 20040301
  2. PAXIL [Suspect]
     Indication: DEPRESSION
     Dosage: 10MG   DAILY   PO
     Route: 048
     Dates: start: 20040301, end: 20050922

REACTIONS (3)
  - CONGENITAL ANOMALY [None]
  - DRUG EXPOSURE DURING PREGNANCY [None]
  - HYPOSPADIAS [None]
